FAERS Safety Report 6745608-3 (Version None)
Quarter: 2010Q2

REPORT INFORMATION
  Report Type: 
  Country: None (occurrence: None)
  Receive Date: 20100528
  Receipt Date: 20100520
  Transmission Date: 20101027
  Serious: Yes (Other)
  Sender: FDA-Public Use
  Company Number: DE-TEVA-235459ISR

PATIENT
  Sex: Female

DRUGS (4)
  1. COPAXONE [Suspect]
     Indication: MULTIPLE SCLEROSIS
     Route: 058
     Dates: end: 20091001
  2. AZATHIOPRINE SODIUM [Suspect]
     Indication: MULTIPLE SCLEROSIS
     Dates: start: 20091001, end: 20100501
  3. AZATHIOPRINE SODIUM [Suspect]
     Dates: start: 20100501, end: 20100501
  4. AZATHIOPRINE SODIUM [Suspect]
     Dates: start: 20100501

REACTIONS (2)
  - BLOOD COUNT ABNORMAL [None]
  - INTERMEDIATE UVEITIS [None]
